FAERS Safety Report 6769388-0 (Version None)
Quarter: 2010Q2

REPORT INFORMATION
  Report Type: 
  Country: None (occurrence: None)
  Receive Date: 20100615
  Receipt Date: 20100602
  Transmission Date: 20101027
  Serious: Yes (Other)
  Sender: FDA-Public Use
  Company Number: PHHY2010US36158

PATIENT
  Sex: Female

DRUGS (1)
  1. GENTEAL (NVO) [Suspect]
     Dosage: UNK
     Dates: end: 20100529

REACTIONS (2)
  - CONDITION AGGRAVATED [None]
  - CONJUNCTIVAL EROSION [None]
